FAERS Safety Report 4655630-9 (Version None)
Quarter: 2005Q2

REPORT INFORMATION
  Report Type: 
  Country: None (occurrence: None)
  Receive Date: 20050505
  Receipt Date: 20050418
  Transmission Date: 20051028
  Serious: Yes (Other)
  Sender: FDA-Public Use
  Company Number: USA050495826

PATIENT
  Age: 73 Year
  Sex: Female

DRUGS (2)
  1. HUMALOG [Suspect]
     Dosage: 45 U/2 DAY
     Dates: start: 20010101
  2. HUMALOG [Suspect]

REACTIONS (4)
  - CONTUSION [None]
  - DEVICE FAILURE [None]
  - PHARMACEUTICAL PRODUCT COMPLAINT [None]
  - WOUND INFECTION [None]
